FAERS Safety Report 13188821 (Version 3)
Quarter: 2017Q2

REPORT INFORMATION
  Report Type: Report from Study
  Country: US (occurrence: US)
  Receive Date: 20170206
  Receipt Date: 20170501
  Transmission Date: 20170830
  Serious: Yes (Hospitalization)
  Sender: FDA-Public Use
  Company Number: US-AEGERION PHARMACEUTICAL INC.-AEGR002988

PATIENT
  Age: 19 Year
  Sex: Female
  Weight: 46.1 kg

DRUGS (11)
  1. INSULIN [Concomitant]
     Active Substance: INSULIN NOS
     Indication: CONGENITAL GENERALISED LIPODYSTROPHY
     Dosage: 75 UNITS TID (ALSO REPORTED AS 50 UNITS TDD)
     Route: 058
     Dates: end: 20170116
  2. ENALAPRIL [Concomitant]
     Active Substance: ENALAPRIL
     Indication: PROTEINURIA
     Dosage: 5 MG, QD
     Route: 048
     Dates: start: 201611, end: 20170117
  3. METRELEPTIN [Suspect]
     Active Substance: METRELEPTIN
     Dosage: 4.5 MG, EVERY 12 HOURS
     Route: 058
     Dates: start: 20170123
  4. METRELEPTIN [Suspect]
     Active Substance: METRELEPTIN
     Indication: PARTIAL LIPODYSTROPHY
     Dosage: 2.7 MG, EVERY 12 HOURS
     Route: 058
     Dates: start: 20130815, end: 20150913
  5. INSULIN [Concomitant]
     Active Substance: INSULIN NOS
     Dosage: 80 UNITS, QD
     Route: 058
     Dates: start: 20170123
  6. FENOFIBRATE. [Concomitant]
     Active Substance: FENOFIBRATE
     Indication: HYPERLIPIDAEMIA
     Dosage: 145 MG, QD
     Route: 048
  7. METRELEPTIN [Suspect]
     Active Substance: METRELEPTIN
     Dosage: 5 MG, EVERY 12 HOURS
     Route: 058
     Dates: start: 20150913, end: 20170123
  8. METFORMIN [Concomitant]
     Active Substance: METFORMIN HYDROCHLORIDE
     Indication: CONGENITAL GENERALISED LIPODYSTROPHY
     Dosage: 850 MG, BID
     Route: 048
  9. EZETIMIBE. [Concomitant]
     Active Substance: EZETIMIBE
     Indication: HYPERLIPIDAEMIA
     Dosage: 10 MG, QD AT HS
     Route: 048
  10. OMEGA-3 FATTY ACIDS [Concomitant]
     Active Substance: OMEGA-3 FATTY ACIDS
     Indication: HYPERLIPIDAEMIA
     Dosage: 2 G, BID
     Route: 048
  11. OMEPRAZOLE. [Concomitant]
     Active Substance: OMEPRAZOLE
     Indication: ABDOMINAL DISCOMFORT
     Dosage: 20 MG, QD
     Route: 048
     Dates: start: 201611

REACTIONS (1)
  - Sepsis [Recovered/Resolved]

NARRATIVE: CASE EVENT DATE: 20170117
